FAERS Safety Report 9471216 (Version 1)
Quarter: 2013Q3

REPORT INFORMATION
  Report Type: Spontaneous
  Country: US (occurrence: US)
  Receive Date: 20130822
  Receipt Date: 20130822
  Transmission Date: 20140515
  Serious: No
  Sender: FDA-Public Use
  Company Number: US-TARO-2013P1001330

PATIENT
  Age: 60 Year
  Sex: Female
  Weight: 58.06 kg

DRUGS (4)
  1. TERBINAFINE HCL CREAM 1% (ATHLETES FOOT) [Suspect]
     Route: 048
     Dates: start: 20130123, end: 20130123
  2. VITAMINS [Concomitant]
  3. MILK THISTLE [Concomitant]
  4. JOINT EASE [Concomitant]

REACTIONS (2)
  - Accidental exposure to product [Recovered/Resolved]
  - Decreased appetite [Recovered/Resolved]
